FAERS Safety Report 5423701-5 (Version None)
Quarter: 2007Q3

REPORT INFORMATION
  Report Type: 
  Country: None (occurrence: None)
  Receive Date: 20070725
  Receipt Date: 20070516
  Transmission Date: 20080115
  Serious: Yes (Other)
  Sender: FDA-Public Use
  Company Number: US200705004590

PATIENT
  Age: 12 Year
  Sex: Male

DRUGS (2)
  1. STRATTERA [Suspect]
     Dosage: 40 MG, ORAL; 60 MG, ORAL;
     Route: 048
  2. HUMAN GROWTH HORMONE (SOMATROPIN) [Concomitant]

REACTIONS (1)
  - COMPLEX PARTIAL SEIZURES [None]
